FAERS Safety Report 13314144 (Version 1)
Quarter: 2017Q1

REPORT INFORMATION
  Report Type: Spontaneous
  Country: DE (occurrence: DE)
  Receive Date: 20170309
  Receipt Date: 20170309
  Transmission Date: 20170428
  Serious: Yes (Death)
  Sender: FDA-Public Use
  Company Number: PHHY2017DE035971

PATIENT
  Sex: Male

DRUGS (1)
  1. IMATINIB [Suspect]
     Active Substance: IMATINIB
     Indication: EOSINOPHILIC LEUKAEMIA
     Dosage: 100 MG, QD
     Route: 065

REACTIONS (3)
  - Eosinophilic leukaemia [Fatal]
  - Drug resistance [Fatal]
  - Leukaemia recurrent [Fatal]
